FAERS Safety Report 4667131-2 (Version None)
Quarter: 2005Q2

REPORT INFORMATION
  Report Type: 
  Country: None (occurrence: None)
  Receive Date: 20050520
  Receipt Date: 20040309
  Transmission Date: 20051028
  Serious: Yes (Other)
  Sender: FDA-Public Use
  Company Number: PHEH2004US02835

PATIENT
  Age: 57 Year
  Sex: Male

DRUGS (8)
  1. DECADRON [Concomitant]
     Indication: PROPHYLAXIS
     Route: 042
  2. HYDROCORTISONE [Concomitant]
     Route: 048
     Dates: start: 20010801
  3. CYTOXAN [Concomitant]
     Dates: start: 20020101
  4. PROLEUKIN [Concomitant]
     Dates: start: 20030618, end: 20030825
  5. ZOLADEX [Concomitant]
     Indication: HORMONE SUPPRESSION THERAPY
     Dates: start: 20030827
  6. PEGINTRON [Concomitant]
     Dates: start: 20020107
  7. HERCEPTIN [Concomitant]
     Dates: start: 20020130, end: 20040113
  8. ZOMETA [Suspect]
     Dosage: 4 MG EVERY MONTH
     Route: 042
     Dates: start: 20011001, end: 20031217

REACTIONS (6)
  - BONE OPERATION [None]
  - IMPAIRED HEALING [None]
  - JAW DISORDER [None]
  - OSTEOMYELITIS [None]
  - OSTEONECROSIS [None]
  - TOOTH EXTRACTION [None]
